FAERS Safety Report 4622666-3 (Version None)
Quarter: 2005Q1

REPORT INFORMATION
  Report Type: 
  Country: None (occurrence: None)
  Receive Date: 20050330
  Receipt Date: 20041210
  Transmission Date: 20050727
  Serious: No
  Sender: FDA-Public Use
  Company Number: US-BRISTOL-MYERS SQUIBB COMPANY-12799680

PATIENT

DRUGS (1)
  1. REYATAZ [Suspect]
     Dosage: DOSE ^300/100^

REACTIONS (1)
  - TRANSAMINASES INCREASED [None]
